FAERS Safety Report 11370595 (Version 1)
Quarter: 2015Q3

REPORT INFORMATION
  Report Type: Spontaneous
  Country: US (occurrence: US)
  Receive Date: 20150812
  Receipt Date: 20150812
  Transmission Date: 20151125
  Serious: No
  Sender: FDA-Public Use
  Company Number: US-BIOGENIDEC-2015BI111518

PATIENT
  Age: 65 Year
  Sex: Male

DRUGS (4)
  1. PROVIGIL [Concomitant]
     Active Substance: MODAFINIL
  2. VIAGRA [Concomitant]
     Active Substance: SILDENAFIL CITRATE
  3. TECFIDERA [Suspect]
     Active Substance: DIMETHYL FUMARATE
     Indication: MULTIPLE SCLEROSIS
     Route: 048
  4. AMITRIPTYLINE HCL [Concomitant]
     Active Substance: AMITRIPTYLINE

REACTIONS (2)
  - Hernia repair [Recovered/Resolved]
  - Incision site pain [Not Recovered/Not Resolved]

NARRATIVE: CASE EVENT DATE: 20150805
